FAERS Safety Report 11187018 (Version 1)
Quarter: 2015Q2

REPORT INFORMATION
  Report Type: Spontaneous
  Country: US (occurrence: US)
  Receive Date: 20150615
  Receipt Date: 20150615
  Transmission Date: 20150821
  Serious: No
  Sender: FDA-Public Use
  Company Number: US-009507513-1506USA007053

PATIENT
  Sex: Female

DRUGS (1)
  1. NUVARING [Suspect]
     Active Substance: ETHINYL ESTRADIOL\ETONOGESTREL
     Indication: CONTRACEPTION
     Dosage: STRENGTH: 0.15/0.12MG, DOSE/FREQUENCY: 0.15/0.12MG/UNSPECIFIED
     Route: 067

REACTIONS (3)
  - Product quality issue [Unknown]
  - Pain [Recovering/Resolving]
  - Medical device discomfort [Recovering/Resolving]
